FAERS Safety Report 10648938 (Version 1)
Quarter: 2014Q4

REPORT INFORMATION
  Report Type: Spontaneous
  Country: FR (occurrence: FR)
  Receive Date: 20141212
  Receipt Date: 20141212
  Transmission Date: 20150529
  Serious: Yes (Death)
  Sender: FDA-Public Use
  Company Number: PHHY2014FR158460

PATIENT
  Sex: Male

DRUGS (7)
  1. CASPOFUNGINE [Concomitant]
     Indication: ASPERGILLUS INFECTION
  2. POSACONAZOLE [Suspect]
     Active Substance: POSACONAZOLE
     Indication: PRODUCT USED FOR UNKNOWN INDICATION
     Route: 065
  3. SULFAMETOXAZOL/TRIMETOPRIM [Concomitant]
     Indication: CHRONIC GRANULOMATOUS DISEASE
     Route: 065
  4. CASPOFUNGINE [Concomitant]
     Indication: CHRONIC GRANULOMATOUS DISEASE
     Route: 065
  5. INTERFERON GAMMA NOS [Concomitant]
     Active Substance: INTERFERON GAMMA
     Indication: PRODUCT USED FOR UNKNOWN INDICATION
     Route: 065
  6. ITRACONAZOLE. [Suspect]
     Active Substance: ITRACONAZOLE
     Indication: CHRONIC GRANULOMATOUS DISEASE
     Route: 065
  7. SULFAMETOXAZOL/TRIMETOPRIM [Concomitant]
     Indication: NOCARDIOSIS

REACTIONS (4)
  - Aspiration [Fatal]
  - Seizure [Fatal]
  - Vasculitic rash [Unknown]
  - Photophobia [Unknown]

NARRATIVE: CASE EVENT DATE: 201006
